FAERS Safety Report 9143788 (Version 4)
Quarter: 2013Q3

REPORT INFORMATION
  Report Type: Spontaneous
  Country: AU (occurrence: AU)
  Receive Date: 20130306
  Receipt Date: 20130731
  Transmission Date: 20140515
  Serious: Yes (Hospitalization, Other)
  Sender: FDA-Public Use
  Company Number: AU-AMGEN-AUSSP2013013156

PATIENT
  Age: 78 Year
  Sex: Female

DRUGS (16)
  1. DARBEPOETIN ALFA [Suspect]
     Indication: RENAL IMPAIRMENT
     Dosage: 40 MUG, QWK
     Route: 058
     Dates: end: 20120323
  2. DARBEPOETIN ALFA [Suspect]
     Indication: ANAEMIA
  3. ASPIRIN (E.C.) [Concomitant]
     Dosage: 100 MG, 1 TAB MANE UNK
     Route: 048
  4. CARVEDILOL [Concomitant]
     Dosage: 12.5 MG,  1 BID
  5. CRESTOR [Concomitant]
     Dosage: 20 MG, 1 TABLET QD
     Route: 048
  6. ENDEP [Concomitant]
     Dosage: 25 MG, 1 NOCHTE, UNK
     Route: 048
  7. FENTANYL PCH [Concomitant]
     Dosage: 25 MUG, QH, 1 PATCH EVERY 72 HOURS
     Route: 062
  8. FRUSEMIDE                          /00032601/ [Concomitant]
     Dosage: 40 MG, 1 TAB MANE, UNK
     Route: 048
  9. MELOXICAM [Concomitant]
     Dosage: 7.5 MG, QD, C.C
     Route: 048
  10. MONODUR [Concomitant]
     Dosage: 60 MG, 1/2 TABLET NOCHTE, UNK
     Route: 048
  11. MOVICOL                            /01625101/ [Concomitant]
     Dosage: 13.125GM/350.7MG/46.6MG/178.5MG, 1 SACHET QD,
     Route: 048
  12. NEXIUM                             /01479302/ [Concomitant]
     Dosage: 40 MG, 1 NOCHTE UNK
     Route: 048
  13. NITROLINGUAL-PUMPSPRAY [Concomitant]
     Dosage: 400 MUG/DOSE, 1-2 DOSES AS NECESSARY
     Route: 060
  14. PANADOL OSTEO [Concomitant]
     Dosage: 665 MG, Q8H 2 TABS AS NECESSARY
     Route: 048
  15. SPIRIVA [Concomitant]
     Dosage: 18 MUG, QD
  16. ADT VACCINE [Concomitant]
     Dosage: UNK
     Dates: start: 20120118

REACTIONS (18)
  - Haemoglobin increased [Not Recovered/Not Resolved]
  - Cerebrovascular accident [Not Recovered/Not Resolved]
  - Diabetes mellitus [Unknown]
  - Carotid artery stenosis [Unknown]
  - Renal mass [Unknown]
  - Tendon injury [Unknown]
  - Sciatica [Unknown]
  - Temporomandibular joint syndrome [Unknown]
  - Spinal disorder [Unknown]
  - Hyperhidrosis [Unknown]
  - Trigger finger [Unknown]
  - Cataract [Unknown]
  - Macrocytosis [Unknown]
  - Bursitis [Unknown]
  - Anaemia megaloblastic [Unknown]
  - Constipation [Unknown]
  - Arteritis [Unknown]
  - Blood cholesterol increased [Unknown]
